FAERS Safety Report 17475497 (Version 5)
Quarter: 2021Q2

REPORT INFORMATION
  Report Type: Spontaneous
  Country: US (occurrence: US)
  Receive Date: 20200228
  Receipt Date: 20210604
  Transmission Date: 20210716
  Serious: No
  Sender: FDA-Public Use
  Company Number: US-PFIZER INC-2017022202

PATIENT
  Age: 75 Year
  Sex: Female
  Weight: 86.64 kg

DRUGS (2)
  1. LYRICA [Suspect]
     Active Substance: PREGABALIN
     Indication: POLYNEUROPATHY
  2. LYRICA [Suspect]
     Active Substance: PREGABALIN
     Indication: NEUROPATHY PERIPHERAL
     Dosage: 300 MG, 2X/DAY(300MG CAPSULES THAT ARE RED AND WHITE, TAKING THEM TWICE A DAY)
     Route: 048

REACTIONS (1)
  - Drug ineffective [Unknown]
